FAERS Safety Report 12637077 (Version 1)
Quarter: 2016Q3

REPORT INFORMATION
  Report Type: Spontaneous
  Country: US (occurrence: US)
  Receive Date: 20160809
  Receipt Date: 20160809
  Transmission Date: 20161109
  Serious: No
  Sender: FDA-Public Use
  Company Number: US-BEH-2015052308

PATIENT
  Sex: Male
  Weight: 48 kg

DRUGS (20)
  1. FLONASE [Concomitant]
     Active Substance: FLUTICASONE PROPIONATE
  2. DIPHENHYDRAMINE. [Concomitant]
     Active Substance: DIPHENHYDRAMINE
  3. ADVAIR HFA [Concomitant]
     Active Substance: FLUTICASONE PROPIONATE\SALMETEROL XINAFOATE
  4. PRIVIGEN [Suspect]
     Active Substance: HUMAN IMMUNOGLOBULIN G
     Route: 042
  5. PRIVIGEN [Suspect]
     Active Substance: HUMAN IMMUNOGLOBULIN G
     Indication: IMMUNODEFICIENCY COMMON VARIABLE
     Route: 042
  6. ACETAMINOPHEN. [Concomitant]
     Active Substance: ACETAMINOPHEN
  7. ZYRTEC [Concomitant]
     Active Substance: CETIRIZINE HYDROCHLORIDE
  8. VICKS NYQUIL [Concomitant]
     Active Substance: ACETAMINOPHEN\DEXTROMETHORPHAN HYDROBROMIDE\DOXYLAMINE SUCCINATE
  9. MULTIVITAMINS [Concomitant]
     Active Substance: VITAMINS
  10. LIDOCAINE. [Concomitant]
     Active Substance: LIDOCAINE
  11. MUCINEX [Concomitant]
     Active Substance: GUAIFENESIN
  12. ALEVE [Concomitant]
     Active Substance: NAPROXEN SODIUM
  13. LOSARTAN. [Concomitant]
     Active Substance: LOSARTAN
  14. PROBIOTIC [Concomitant]
     Active Substance: PROBIOTICS NOS
  15. SODIUM CHLORIDE. [Concomitant]
     Active Substance: SODIUM CHLORIDE
  16. PRIVIGEN [Suspect]
     Active Substance: HUMAN IMMUNOGLOBULIN G
     Route: 042
  17. PRIVIGEN [Suspect]
     Active Substance: HUMAN IMMUNOGLOBULIN G
     Route: 042
  18. OMEPRAZOLE. [Concomitant]
     Active Substance: OMEPRAZOLE
  19. EPIPEN [Concomitant]
     Active Substance: EPINEPHRINE
     Indication: ANAPHYLACTIC REACTION
  20. CALCIUM [Concomitant]
     Active Substance: CALCIUM

REACTIONS (3)
  - Sinusitis [Unknown]
  - Bronchitis [Unknown]
  - Arthralgia [Unknown]
